FAERS Safety Report 20502957 (Version 1)
Quarter: 2022Q1

REPORT INFORMATION
  Report Type: Spontaneous
  Country: US (occurrence: US)
  Receive Date: 20220222
  Receipt Date: 20220222
  Transmission Date: 20220423
  Serious: No
  Sender: FDA-Public Use
  Company Number: US-ALLERGAN-2115838US

PATIENT
  Age: 60 Year

DRUGS (2)
  1. OZURDEX [Suspect]
     Active Substance: DEXAMETHASONE
     Indication: Uveitis
     Dosage: 0.7 MG, SINGLE
     Route: 031
     Dates: start: 20210409, end: 20210409
  2. OZURDEX [Suspect]
     Active Substance: DEXAMETHASONE
     Indication: Intraocular pressure increased

REACTIONS (6)
  - Eye contusion [Recovering/Resolving]
  - Off label use [Unknown]
  - Ocular hyperaemia [Recovering/Resolving]
  - Headache [Not Recovered/Not Resolved]
  - Vitreous floaters [Recovering/Resolving]
  - Drug ineffective [Unknown]

NARRATIVE: CASE EVENT DATE: 20210409
